FAERS Safety Report 9057102 (Version 1)
Quarter: 2013Q1

REPORT INFORMATION
  Report Type: Report from Study
  Country: US (occurrence: US)
  Receive Date: 20130131
  Receipt Date: 20130131
  Transmission Date: 20140127
  Serious: No
  Sender: FDA-Public Use
  Company Number: US-ABBOTT-12P-163-0995201-00

PATIENT
  Age: 43 Year
  Sex: Female

DRUGS (7)
  1. HUMIRA [Suspect]
     Indication: CROHN^S DISEASE
     Dates: start: 20120927, end: 20120927
  2. HUMIRA [Suspect]
     Dates: start: 20121011
  3. GENERIC COREG [Concomitant]
     Indication: BLOOD PRESSURE
     Route: 048
  4. LISINOPRIL [Concomitant]
     Indication: BLOOD PRESSURE
     Dosage: 40MG DAILY
     Route: 048
  5. PROGESTERONE [Concomitant]
     Indication: MENSTRUAL CYCLE MANAGEMENT
     Dosage: ONE IN MORNING AND TWO IN EVENING
     Route: 048
  6. OMEPRAZOLE [Concomitant]
     Indication: GASTROOESOPHAGEAL REFLUX DISEASE
     Dosage: 20MG DAILY
  7. VYVANSE [Concomitant]
     Indication: ATTENTION DEFICIT/HYPERACTIVITY DISORDER
     Dosage: 70MG DAILY
     Route: 048

REACTIONS (2)
  - Drug dose omission [Unknown]
  - Injection site pain [Unknown]
